FAERS Safety Report 9613156 (Version 1)
Quarter: 2013Q4

REPORT INFORMATION
  Report Type: Spontaneous
  Country: US (occurrence: US)
  Receive Date: 20131010
  Receipt Date: 20131010
  Transmission Date: 20140711
  Serious: Yes (Death, Life-Threatening, Hospitalization)
  Sender: FDA-Public Use
  Company Number: US-AMGEN-USASP2013070199

PATIENT
  Sex: Female

DRUGS (3)
  1. ENBREL [Suspect]
     Indication: PSORIASIS
     Dosage: UNK
     Route: 065
     Dates: start: 201001, end: 201012
  2. ENBREL [Suspect]
     Indication: ARTHRITIS
  3. AMARYL [Concomitant]
     Indication: PRODUCT USED FOR UNKNOWN INDICATION

REACTIONS (5)
  - Cerebral haemorrhage [Fatal]
  - Platelet disorder [Unknown]
  - Immune system disorder [Unknown]
  - Autoimmune disorder [Unknown]
  - Thrombocytopenia [Unknown]
